FAERS Safety Report 5199727-6 (Version None)
Quarter: 2007Q1

REPORT INFORMATION
  Report Type: 
  Country: None (occurrence: None)
  Receive Date: 20070102
  Receipt Date: 20070102
  Transmission Date: 20070707
  Serious: Yes (Death)
  Sender: FDA-Public Use
  Company Number: None

PATIENT
  Age: 84 Year
  Sex: Male

DRUGS (2)
  1. HEPARIN [Suspect]
     Indication: ACUTE MYOCARDIAL INFARCTION
     Dosage: INFUSION
  2. EPTIFIBATIDE [Suspect]
     Indication: ACUTE MYOCARDIAL INFARCTION
     Dosage: INFUSION

REACTIONS (5)
  - GASTROINTESTINAL DISORDER [None]
  - HAEMOPTYSIS [None]
  - HYPOTENSION [None]
  - RENAL FAILURE [None]
  - SHOCK [None]
